FAERS Safety Report 13399697 (Version 1)
Quarter: 2017Q2

REPORT INFORMATION
  Report Type: Report from Study
  Country: US (occurrence: US)
  Receive Date: 20170404
  Receipt Date: 20170404
  Transmission Date: 20170830
  Serious: Yes (Hospitalization, Other)
  Sender: FDA-Public Use
  Company Number: US-ACTELION-A-CH2016-137237

PATIENT
  Age: 13 Year
  Sex: Female
  Weight: 53 kg

DRUGS (17)
  1. FOLIC ACID. [Concomitant]
     Active Substance: FOLIC ACID
  2. ASPIRIN. [Concomitant]
     Active Substance: ASPIRIN
  3. VITAMIN B12 [Concomitant]
     Active Substance: CYANOCOBALAMIN
  4. DIGOXIN. [Concomitant]
     Active Substance: DIGOXIN
  5. XANAX [Concomitant]
     Active Substance: ALPRAZOLAM
  6. TADALAFIL [Concomitant]
     Active Substance: TADALAFIL
     Dosage: UNK
     Dates: start: 201311
  7. ALDACTONE [Concomitant]
     Active Substance: SPIRONOLACTONE
  8. OXYGEN. [Concomitant]
     Active Substance: OXYGEN
  9. TREPROSTINIL [Concomitant]
     Active Substance: TREPROSTINIL
     Dosage: UNK
     Route: 042
     Dates: start: 20131228
  10. NORETHINDRONE. [Concomitant]
     Active Substance: NORETHINDRONE
  11. COLACE [Concomitant]
     Active Substance: DOCUSATE SODIUM
  12. LANSOPRAZOLE. [Concomitant]
     Active Substance: LANSOPRAZOLE
  13. LEXAPRO [Concomitant]
     Active Substance: ESCITALOPRAM OXALATE
  14. NEXIUM [Concomitant]
     Active Substance: ESOMEPRAZOLE MAGNESIUM
  15. OPSUMIT [Suspect]
     Active Substance: MACITENTAN
     Indication: PULMONARY ARTERIAL HYPERTENSION
     Dosage: 10 MG, UNK
     Route: 048
     Dates: start: 20160323, end: 20170209
  16. ZANTAC [Concomitant]
     Active Substance: RANITIDINE HYDROCHLORIDE
  17. SIMETHICONE (DIMETHICONE) [Concomitant]
     Active Substance: DIMETHICONE

REACTIONS (6)
  - Liver function test increased [Recovered/Resolved]
  - Pulmonary haemorrhage [Unknown]
  - Arterial therapeutic procedure [Unknown]
  - Aspartate aminotransferase increased [Recovered/Resolved]
  - Haemoptysis [Unknown]
  - Alanine aminotransferase increased [Recovered/Resolved]

NARRATIVE: CASE EVENT DATE: 20160418
